FAERS Safety Report 11080624 (Version 1)
Quarter: 2015Q2

REPORT INFORMATION
  Report Type: Spontaneous
  Country: US (occurrence: US)
  Receive Date: 20150501
  Receipt Date: 20150501
  Transmission Date: 20150821
  Serious: No
  Sender: FDA-Public Use
  Company Number: US-009507513-1504USA021345

PATIENT
  Age: 19 Year
  Sex: Female
  Weight: 72.11 kg

DRUGS (2)
  1. NUVARING [Suspect]
     Active Substance: ETHINYL ESTRADIOL\ETONOGESTREL
     Dosage: UNK
     Route: 067
     Dates: start: 20090520
  2. NUVARING [Suspect]
     Active Substance: ETHINYL ESTRADIOL\ETONOGESTREL
     Indication: MENORRHAGIA
     Dosage: THREE MONTHS IN AND ONE WEEK OUT (LEAVES THE RING FOR FOUR WEEKS TAKES OUT AND INSERTS A NEW RING)
     Route: 067
     Dates: start: 20120725

REACTIONS (5)
  - Menorrhagia [Unknown]
  - Incorrect drug administration duration [Unknown]
  - Incorrect drug administration duration [Unknown]
  - Incorrect drug administration duration [Unknown]
  - Drug administration error [Unknown]

NARRATIVE: CASE EVENT DATE: 20120725
